FAERS Safety Report 4979046-0 (Version None)
Quarter: 2006Q2

REPORT INFORMATION
  Report Type: 
  Country: None (occurrence: None)
  Receive Date: 20060419
  Receipt Date: 20060419
  Transmission Date: 20061013
  Serious: Yes (Hospitalization)
  Sender: FDA-Public Use
  Company Number: None

PATIENT
  Age: 86 Year
  Sex: Male
  Weight: 87 kg

DRUGS (1)
  1. PROCRIT [Suspect]
     Indication: RENAL FAILURE CHRONIC
     Dosage: 40,000 UNITS WEEKLY SQ
     Route: 058
     Dates: start: 20031016

REACTIONS (5)
  - BODY TEMPERATURE INCREASED [None]
  - HAEMATOCRIT INCREASED [None]
  - MENTAL STATUS CHANGES [None]
  - URINARY TRACT INFECTION [None]
  - URINE ABNORMALITY [None]
